FAERS Safety Report 25078798 (Version 1)
Quarter: 2025Q1

REPORT INFORMATION
  Report Type: Spontaneous
  Country: US (occurrence: None)
  Receive Date: 20250314
  Receipt Date: 20250314
  Transmission Date: 20250408
  Serious: Yes (Disabling)
  Sender: FDA-CTU
  Company Number: None

PATIENT
  Age: 45 Year
  Sex: Male
  Weight: 63 kg

DRUGS (1)
  1. FINASTERIDE [Suspect]
     Active Substance: FINASTERIDE
     Indication: Alopecia
     Dates: start: 20150301, end: 20150315

REACTIONS (3)
  - Libido decreased [None]
  - Erectile dysfunction [None]
  - Sexual dysfunction [None]

NARRATIVE: CASE EVENT DATE: 20150301
